FAERS Safety Report 7185570-5 (Version None)
Quarter: 2010Q4

REPORT INFORMATION
  Report Type: 
  Country: None (occurrence: None)
  Receive Date: 20101123
  Receipt Date: 20100819
  Transmission Date: 20110411
  Serious: No
  Sender: FDA-Public Use
  Company Number: 017480

PATIENT
  Sex: Male
  Weight: 91 kg

DRUGS (10)
  1. CIMZIA [Suspect]
     Indication: CROHN'S DISEASE
     Dosage: (200 MG 1X/MONTH SUBCUTANEOUS)
     Route: 058
     Dates: start: 20100501
  2. AZATHIOPRINE [Concomitant]
  3. ARICEPT [Concomitant]
  4. ROPINIROLE [Concomitant]
  5. POTASSIUM [Concomitant]
  6. FOSAMAX [Concomitant]
  7. FOLIC ACID [Concomitant]
  8. CALCIUM [Concomitant]
  9. MULTI-VITAMINS [Concomitant]
  10. MORPHINE [Concomitant]

REACTIONS (4)
  - EXOSTOSIS [None]
  - MUSCLE RUPTURE [None]
  - MUSCULOSKELETAL PAIN [None]
  - ROTATOR CUFF SYNDROME [None]
